FAERS Safety Report 24772343 (Version 1)
Quarter: 2024Q4

REPORT INFORMATION
  Report Type: Spontaneous
  Country: TH (occurrence: TH)
  Receive Date: 20241224
  Receipt Date: 20241224
  Transmission Date: 20250114
  Serious: Yes (Other)
  Sender: PFIZER
  Company Number: TH-PFIZER INC-PV202400167478

PATIENT
  Age: 69 Year
  Sex: Male

DRUGS (1)
  1. LORLATINIB [Suspect]
     Active Substance: LORLATINIB
     Indication: Non-small cell lung cancer
     Dosage: 75 MG, 1X/DAY (25 MG 3 TABS)
     Route: 048
     Dates: start: 20241017

REACTIONS (1)
  - Acute kidney injury [Unknown]
